FAERS Safety Report 19624479 (Version 2)
Quarter: 2021Q3

REPORT INFORMATION
  Report Type: Spontaneous
  Country: US (occurrence: US)
  Receive Date: 20210729
  Receipt Date: 20210830
  Transmission Date: 20211014
  Serious: No
  Sender: FDA-Public Use
  Company Number: US-TEVA-2021-US-1936439

PATIENT
  Age: 39 Year
  Sex: Male

DRUGS (2)
  1. VENLAFAXINE [Suspect]
     Active Substance: VENLAFAXINE HYDROCHLORIDE
     Indication: DIZZINESS
     Dosage: FORM OF ADMIN: EXTENDED / SUSTAINED RELEASE TABLETS
     Route: 065
     Dates: start: 2001
  2. VENLAFAXINE [Suspect]
     Active Substance: VENLAFAXINE HYDROCHLORIDE
     Dosage: FORM OF ADMIN: EXTENDED / SUSTAINED RELEASE TABLETS
     Route: 065
     Dates: start: 202107

REACTIONS (3)
  - Drug ineffective [Unknown]
  - Palpitations [Recovering/Resolving]
  - Product use in unapproved indication [Unknown]

NARRATIVE: CASE EVENT DATE: 2001
